FAERS Safety Report 7511043-3 (Version None)
Quarter: 2011Q2

REPORT INFORMATION
  Report Type: 
  Country: None (occurrence: None)
  Receive Date: 20110531
  Receipt Date: 20110520
  Transmission Date: 20111010
  Serious: Yes (Other)
  Sender: FDA-Public Use
  Company Number: US-PFIZER INC-2011109692

PATIENT
  Sex: Female
  Weight: 47.2 kg

DRUGS (2)
  1. ESTROGENS [Concomitant]
     Dosage: UNK
     Route: 062
  2. ESTRING [Suspect]
     Indication: VULVOVAGINAL DRYNESS
     Dosage: 2 MG, UNK
     Route: 067
     Dates: start: 20090101, end: 20110401

REACTIONS (5)
  - NAUSEA [None]
  - DIZZINESS [None]
  - GLUCOSE TOLERANCE IMPAIRED [None]
  - VAGINAL HAEMORRHAGE [None]
  - DYSPAREUNIA [None]
